FAERS Safety Report 7970949 (Version 2)
Quarter: 2013Q1

REPORT INFORMATION
  Report Type: Spontaneous
  Country: VE (occurrence: VE)
  Receive Date: 20110602
  Receipt Date: 20130307
  Transmission Date: 20140127
  Serious: Yes (Death, Hospitalization, Other)
  Sender: FDA-Public Use
  Company Number: PHHY2011VE46842

PATIENT
  Age: 73 Year
  Sex: Female

DRUGS (1)
  1. DIOVAN HCT [Suspect]
     Indication: HYPERTENSION
     Dosage: 1 DF, DAILY (80 MG VALS AND 12.5 MG HYDR)
     Route: 048

REACTIONS (3)
  - Cerebrovascular accident [Fatal]
  - Brain injury [Unknown]
  - Thrombosis [Unknown]
